FAERS Safety Report 25681911 (Version 2)
Quarter: 2025Q3

REPORT INFORMATION
  Report Type: Spontaneous
  Country: JP (occurrence: JP)
  Receive Date: 20250814
  Receipt Date: 20250824
  Transmission Date: 20251020
  Serious: Yes (Life-Threatening, Hospitalization, Other)
  Sender: SANOFI AVENTIS
  Company Number: JP-MLMSERVICE-20250804-PI602346-00077-1

PATIENT
  Age: 70 Year
  Sex: Male
  Weight: 45.8 kg

DRUGS (12)
  1. CAPECITABINE [Suspect]
     Active Substance: CAPECITABINE
     Indication: Colon cancer metastatic
     Dosage: 2000 MG/M2, BID (BEGINNING FROM THE EVENING OF DAY 1 UNTIL THE MORNING OF DAY 15; THIS REGIMEN WAS R
     Route: 048
  2. OXALIPLATIN [Suspect]
     Active Substance: OXALIPLATIN
     Indication: Colon cancer metastatic
     Dosage: 130 MG/M2, QD (ADMINISTERED ON DAY 1; REGIMEN WAS REPEATED EVERY 3 WEEKS)
  3. BEVACIZUMAB [Suspect]
     Active Substance: BEVACIZUMAB
     Indication: Colon cancer metastatic
     Dosage: 10 MG/KG, QD (ADMINISTERED ON DAY 1; REGIMEN WAS REPEATED EVERY 3 WEEKS)
  4. PALONOSETRON [Concomitant]
     Active Substance: PALONOSETRON
     Indication: Prophylaxis of nausea and vomiting
     Route: 042
  5. DEXAMETHASONE [Concomitant]
     Active Substance: DEXAMETHASONE
     Dosage: 4.95 MG, QD (ADMINISTERED 30 MIN BEFORE OXALIPLATIN ON DAY 1)
  6. APREPITANT [Concomitant]
     Active Substance: APREPITANT
     Dosage: 125 MG, QD (ADMINISTERED UP TO 1 H BEFORE OXALIPLATIN ADMINISTRATION ON DAY 1)
     Route: 048
  7. APREPITANT [Concomitant]
     Active Substance: APREPITANT
     Dosage: 80 MG, QD (ON DAYS 2 AND 3, ADMINISTERED AFTER BREAKFAST)
     Route: 048
  8. CLOPIDOGREL [Concomitant]
     Active Substance: CLOPIDOGREL BISULFATE
  9. VALSARTAN [Concomitant]
     Active Substance: VALSARTAN
  10. IFENPRODIL [Concomitant]
     Active Substance: IFENPRODIL
  11. FOLIC ACID [Concomitant]
     Active Substance: FOLIC ACID
  12. TEPRENONE [Concomitant]
     Active Substance: TEPRENONE

REACTIONS (5)
  - Inappropriate antidiuretic hormone secretion [Recovered/Resolved]
  - Hyponatraemia [Recovered/Resolved]
  - Nausea [Unknown]
  - Decreased appetite [Unknown]
  - Hiccups [Unknown]
